FAERS Safety Report 7021805-7 (Version None)
Quarter: 2010Q3

REPORT INFORMATION
  Report Type: 
  Country: None (occurrence: None)
  Receive Date: 20100930
  Receipt Date: 20100920
  Transmission Date: 20110219
  Serious: No
  Sender: FDA-Public Use
  Company Number: US-BIOGENIDEC-2010BI033310

PATIENT
  Sex: Female

DRUGS (2)
  1. TYSABRI [Suspect]
     Indication: MULTIPLE SCLEROSIS
     Route: 042
     Dates: start: 20071129, end: 20080201
  2. TYSABRI [Suspect]
     Route: 042
     Dates: start: 20091009

REACTIONS (3)
  - ADRENAL INSUFFICIENCY [None]
  - ARTHROPOD BITE [None]
  - IMMUNODEFICIENCY COMMON VARIABLE [None]
